FAERS Safety Report 17204808 (Version 2)
Quarter: 2020Q1

REPORT INFORMATION
  Report Type: Spontaneous
  Country: BR (occurrence: BR)
  Receive Date: 20191226
  Receipt Date: 20200127
  Transmission Date: 20200409
  Serious: Yes (Other)
  Sender: FDA-Public Use
  Company Number: BR-AMGEN-BRASP2019207040

PATIENT
  Age: 48 Year
  Sex: Female
  Weight: 52 kg

DRUGS (3)
  1. PRELONE [Concomitant]
     Active Substance: PREDNISOLONE
     Indication: ARTHRALGIA
     Dosage: UNK
     Dates: start: 201103
  2. METHOTREXATE SODIUM. [Concomitant]
     Active Substance: METHOTREXATE SODIUM
     Indication: ARTHRALGIA
     Dosage: UNK
     Dates: start: 201103
  3. ENBREL [Suspect]
     Active Substance: ETANERCEPT
     Indication: RHEUMATOID ARTHRITIS
     Dosage: 50 MILLIGRAM, QWK
     Route: 065
     Dates: start: 201709

REACTIONS (7)
  - Alopecia [Unknown]
  - Arthralgia [Unknown]
  - Arrhythmia [Unknown]
  - Headache [Unknown]
  - Diplopia [Unknown]
  - Fatigue [Unknown]
  - Epicondylitis [Not Recovered/Not Resolved]

NARRATIVE: CASE EVENT DATE: 201812
